FAERS Safety Report 6820568-5 (Version None)
Quarter: 2010Q3

REPORT INFORMATION
  Report Type: 
  Country: None (occurrence: None)
  Receive Date: 20100707
  Receipt Date: 20100629
  Transmission Date: 20110219
  Serious: Yes (Death, Life-Threatening, Hospitalization, Disabling, Other)
  Sender: FDA-Public Use
  Company Number: A0867633A

PATIENT
  Sex: Female

DRUGS (3)
  1. ZOFRAN [Suspect]
     Indication: PROPHYLAXIS OF NAUSEA AND VOMITING
     Dosage: 8MG AS REQUIRED
     Route: 048
     Dates: start: 20090601
  2. ADRIAMYCIN PFS [Concomitant]
  3. CYTOXAN [Concomitant]

REACTIONS (1)
  - BREAST CANCER [None]
